FAERS Safety Report 9386252 (Version 2)
Quarter: 2013Q3

REPORT INFORMATION
  Report Type: Spontaneous
  Country: GB (occurrence: GB)
  Receive Date: 20130708
  Receipt Date: 20130711
  Transmission Date: 20140515
  Serious: Yes (Other)
  Sender: FDA-Public Use
  Company Number: GB-MERCK-1307GBR000837

PATIENT
  Age: 43 Year
  Sex: Female

DRUGS (10)
  1. SITAGLIPTIN PHOSPHATE [Suspect]
     Indication: TYPE 2 DIABETES MELLITUS
     Dosage: 100 MG, UNK
     Route: 048
     Dates: start: 20130614, end: 20130617
  2. ATENOLOL [Concomitant]
  3. BUSCOPAN [Concomitant]
  4. CITALOPRAM [Concomitant]
  5. FROVATRIPTAN [Concomitant]
  6. METFORMIN [Concomitant]
     Dosage: UNK
     Dates: end: 2013
  7. OMEPRAZOLE [Concomitant]
  8. RAMIPRIL [Concomitant]
  9. LEVOTHYROXINE SODIUM [Concomitant]
  10. TRIMETHOPRIM [Concomitant]

REACTIONS (3)
  - Cough [Recovering/Resolving]
  - Pruritus generalised [Recovering/Resolving]
  - Dyspnoea [Recovering/Resolving]
